FAERS Safety Report 10390521 (Version 1)
Quarter: 2014Q3

REPORT INFORMATION
  Report Type: Spontaneous
  Country: FR (occurrence: None)
  Receive Date: 20140814
  Receipt Date: 20140814
  Transmission Date: 20150326
  Serious: Yes (Hospitalization)
  Sender: FDA-Public Use
  Company Number: AUR-APL-2014-08485

PATIENT
  Age: 12 Year
  Sex: Female

DRUGS (4)
  1. AMOXICILLIN. [Suspect]
     Active Substance: AMOXICILLIN
     Indication: PROPHYLAXIS
     Dates: start: 2012
  2. RIFAMYCIN [Suspect]
     Active Substance: RIFAMYCIN
     Dates: start: 2009
  3. AMOXICILLIN. [Suspect]
     Active Substance: AMOXICILLIN
     Indication: LYME DISEASE
     Dates: start: 2012
  4. RIFAMYCIN [Suspect]
     Active Substance: RIFAMYCIN
     Indication: PROPHYLAXIS
     Dates: start: 2009

REACTIONS (3)
  - Dermatitis bullous [None]
  - Drug eruption [None]
  - Drug hypersensitivity [None]
